FAERS Safety Report 5466637-6 (Version None)
Quarter: 2007Q3

REPORT INFORMATION
  Report Type: 
  Country: None (occurrence: None)
  Receive Date: 20070921
  Receipt Date: 20070921
  Transmission Date: 20080115
  Serious: Yes (Other)
  Sender: FDA-Public Use
  Company Number: None

PATIENT
  Age: 50 Year
  Sex: Female

DRUGS (2)
  1. LORCET [Suspect]
     Dosage: TABLET
  2. FIORICET [Suspect]
     Dosage: CAPSULE

REACTIONS (5)
  - ACCIDENT [None]
  - DRUG DISPENSING ERROR [None]
  - MEDICATION ERROR [None]
  - SOMNOLENCE [None]
  - WRONG DRUG ADMINISTERED [None]
